FAERS Safety Report 21002393 (Version 14)
Quarter: 2022Q3

REPORT INFORMATION
  Report Type: Spontaneous
  Country: US (occurrence: US)
  Receive Date: 20220624
  Receipt Date: 20220928
  Transmission Date: 20221027
  Serious: No
  Sender: FDA-Public Use
  Company Number: US-UNITED THERAPEUTICS-UNT-2022-013529

PATIENT
  Sex: Female
  Weight: 92.517 kg

DRUGS (13)
  1. REMODULIN [Suspect]
     Active Substance: TREPROSTINIL
     Indication: Pulmonary arterial hypertension
     Dosage: 0.011 ?G/KG, CONTINUING
     Route: 058
     Dates: start: 20220614, end: 2022
  2. REMODULIN [Suspect]
     Active Substance: TREPROSTINIL
     Dosage: 0.0135 ?G/KG, CONTINUING
     Route: 058
     Dates: start: 2022
  3. REMODULIN [Suspect]
     Active Substance: TREPROSTINIL
     Indication: Pulmonary arterial hypertension
     Dosage: UNK, CONTINUING
     Route: 058
     Dates: start: 2022, end: 2022
  4. REMODULIN [Suspect]
     Active Substance: TREPROSTINIL
     Dosage: 0.020 ?G/KG, CONTINUING
     Route: 058
     Dates: start: 2022
  5. REMODULIN [Suspect]
     Active Substance: TREPROSTINIL
     Dosage: 0.026 ?G/KG, CONTINUING
     Route: 058
     Dates: start: 2022
  6. LECITHIN\POLOXAMER 407 [Suspect]
     Active Substance: LECITHIN\POLOXAMER 407
     Indication: Infusion site pain
     Dosage: UNK
     Route: 065
     Dates: start: 2022
  7. WARFARIN SODIUM [Suspect]
     Active Substance: WARFARIN SODIUM
     Indication: Product used for unknown indication
     Dosage: UNK
     Route: 065
  8. VELETRI [Suspect]
     Active Substance: EPOPROSTENOL
     Indication: Pulmonary arterial hypertension
     Dosage: UNK
     Route: 041
     Dates: start: 2022
  9. VELETRI [Suspect]
     Active Substance: EPOPROSTENOL
     Dosage: 12 NG/KG/MIN
     Route: 041
     Dates: start: 2022
  10. VELETRI [Suspect]
     Active Substance: EPOPROSTENOL
     Dosage: 13 NG/KG/MIN
     Route: 041
     Dates: start: 2022
  11. ADCIRCA [Concomitant]
     Active Substance: TADALAFIL
     Indication: Pulmonary arterial hypertension
     Dosage: UNK
     Route: 065
  12. UPTRAVI [Concomitant]
     Active Substance: SELEXIPAG
     Indication: Product used for unknown indication
     Dosage: UNK
     Route: 065
     Dates: end: 202206
  13. AMBRISENTAN [Concomitant]
     Active Substance: AMBRISENTAN
     Indication: Product used for unknown indication
     Route: 065

REACTIONS (29)
  - Infusion site pain [Not Recovered/Not Resolved]
  - Dermatitis contact [Recovering/Resolving]
  - Infusion site erythema [Recovering/Resolving]
  - Infusion site warmth [Unknown]
  - Infusion site swelling [Unknown]
  - Chromaturia [Unknown]
  - Urine abnormality [Unknown]
  - Infusion site bruising [Unknown]
  - Rash [Unknown]
  - Infusion site reaction [Unknown]
  - Therapy partial responder [Unknown]
  - Infusion site haemorrhage [Unknown]
  - Infusion site rash [Unknown]
  - Erythema [Unknown]
  - Flushing [Unknown]
  - Headache [Unknown]
  - Dizziness [Unknown]
  - Eye swelling [Unknown]
  - Oxygen saturation decreased [Unknown]
  - Skin abrasion [Unknown]
  - Diarrhoea [Unknown]
  - Abdominal pain [Unknown]
  - Device use error [Unknown]
  - Device infusion issue [Unknown]
  - Periorbital swelling [Unknown]
  - Fatigue [Unknown]
  - Palpitations [Unknown]
  - Heart rate increased [Unknown]
  - Nausea [Unknown]

NARRATIVE: CASE EVENT DATE: 20220101
